FAERS Safety Report 6402020-4 (Version None)
Quarter: 2009Q4

REPORT INFORMATION
  Report Type: 
  Country: None (occurrence: None)
  Receive Date: 20091015
  Receipt Date: 20090925
  Transmission Date: 20100525
  Serious: Yes (Other)
  Sender: FDA-Public Use
  Company Number: US-NAPPMUNDI-USA-2009-0040340

PATIENT

DRUGS (1)
  1. OXYCONTIN [Suspect]
     Indication: ANALGESIC THERAPY
     Dosage: UNK
     Dates: start: 20010806, end: 20030510

REACTIONS (7)
  - ABDOMINAL PAIN [None]
  - ANGINA PECTORIS [None]
  - ASTHENIA [None]
  - CHILLS [None]
  - CHOLECYSTECTOMY [None]
  - CONSTIPATION [None]
  - PAIN [None]
